FAERS Safety Report 5726457-1 (Version None)
Quarter: 2008Q2

REPORT INFORMATION
  Report Type: 
  Country: None (occurrence: None)
  Receive Date: 20080502
  Receipt Date: 20080429
  Transmission Date: 20081010
  Serious: Yes (Other)
  Sender: FDA-Public Use
  Company Number: B0518532A

PATIENT
  Age: 37 Year
  Sex: Male

DRUGS (3)
  1. AUGMENTIN [Suspect]
     Indication: PHARYNGITIS
     Route: 048
     Dates: start: 20080306, end: 20080301
  2. LUMINAL [Concomitant]
     Indication: DRUG USE FOR UNKNOWN INDICATION
     Route: 065
     Dates: start: 20040101
  3. PARACETAMOL [Concomitant]
     Indication: DRUG USE FOR UNKNOWN INDICATION
     Route: 065
     Dates: start: 20080306

REACTIONS (1)
  - CONVULSION [None]
